FAERS Safety Report 25375109 (Version 1)
Quarter: 2025Q2

REPORT INFORMATION
  Report Type: Spontaneous
  Country: US (occurrence: None)
  Receive Date: 20250529
  Receipt Date: 20250529
  Transmission Date: 20250716
  Serious: Yes (Life-Threatening, Hospitalization, Disabling, Other)
  Sender: FDA-CTU
  Company Number: None

PATIENT
  Age: 17 Year
  Sex: Female
  Weight: 56.25 kg

DRUGS (1)
  1. LEXAPRO [Suspect]
     Active Substance: ESCITALOPRAM OXALATE
     Indication: Depression
     Route: 048
     Dates: start: 20220520, end: 20221020

REACTIONS (17)
  - Drug ineffective [None]
  - Therapy interrupted [None]
  - Withdrawal syndrome [None]
  - Feeling abnormal [None]
  - Discomfort [None]
  - Road traffic accident [None]
  - Motor dysfunction [None]
  - Abnormal behaviour [None]
  - Suicide attempt [None]
  - Intentional overdose [None]
  - Insomnia [None]
  - Decreased appetite [None]
  - Anger [None]
  - Electric shock sensation [None]
  - Amnesia [None]
  - Apathy [None]
  - Bedridden [None]

NARRATIVE: CASE EVENT DATE: 20220813
